FAERS Safety Report 11432076 (Version 1)
Quarter: 2015Q3

REPORT INFORMATION
  Report Type: Not Available
  Country: FR (occurrence: FR)
  Receive Date: 20150828
  Receipt Date: 20150828
  Transmission Date: 20151125
  Serious: Yes (Hospitalization, Other)
  Sender: FDA-Public Use
  Company Number: FR-BEH-2011029684

PATIENT
  Age: 32 Year
  Sex: Female
  Weight: 79 kg

DRUGS (7)
  1. BERINERT [Suspect]
     Active Substance: HUMAN C1-ESTERASE INHIBITOR
     Dates: start: 20110801
  2. C1 INHIBITOR [Concomitant]
     Dosage: FREQUENY: OTHER
     Dates: start: 20110325
  3. BERINERT [Suspect]
     Active Substance: HUMAN C1-ESTERASE INHIBITOR
     Dates: start: 20110708
  4. CERAZETTE [Concomitant]
     Active Substance: DESOGESTREL
     Indication: ORAL CONTRACEPTION
  5. BERINERT [Suspect]
     Active Substance: HUMAN C1-ESTERASE INHIBITOR
     Indication: HEREDITARY ANGIOEDEMA
     Dates: start: 20110728
  6. BERINERT [Suspect]
     Active Substance: HUMAN C1-ESTERASE INHIBITOR
     Dosage: START DATE: END OF MAR-2011
  7. TRANEXAMIC ACID + ICATIBANT [Concomitant]
     Indication: HEREDITARY ANGIOEDEMA
     Dates: start: 20110226

REACTIONS (5)
  - Dizziness [Recovered/Resolved]
  - Vomiting [Recovered/Resolved]
  - Malaise [Recovered/Resolved]
  - Headache [Recovered/Resolved]
  - Pain in extremity [Recovered/Resolved]

NARRATIVE: CASE EVENT DATE: 20110728
